FAERS Safety Report 10416807 (Version 2)
Quarter: 2014Q3

REPORT INFORMATION
  Report Type: Spontaneous
  Country: US (occurrence: US)
  Receive Date: 20140828
  Receipt Date: 20140828
  Transmission Date: 20150326
  Serious: Yes (Hospitalization)
  Sender: FDA-Public Use
  Company Number: US-009507513-2009SP020332

PATIENT
  Sex: Female
  Weight: 80.74 kg

DRUGS (5)
  1. METHOTREXATE [Concomitant]
     Active Substance: METHOTREXATE
     Indication: PSORIASIS
     Dosage: 7.5 MG, QW
  2. NUVARING [Suspect]
     Active Substance: ETHINYL ESTRADIOL\ETONOGESTREL
     Indication: CONTRACEPTION
     Dosage: 1 DF, QM
     Route: 067
     Dates: start: 20050320, end: 20050914
  3. VALTREX [Concomitant]
     Active Substance: VALACYCLOVIR HYDROCHLORIDE
     Indication: INFECTION PROPHYLAXIS
     Dosage: 500 MG, QD
  4. FOLIC ACID. [Concomitant]
     Active Substance: FOLIC ACID
     Indication: PSORIASIS
     Dosage: 1 MG, QD
  5. RAPTIVA [Concomitant]
     Active Substance: EFALIZUMAB
     Indication: PSORIASIS
     Dosage: 125 MG, QW

REACTIONS (8)
  - Deep vein thrombosis [Recovered/Resolved with Sequelae]
  - Genital herpes [Unknown]
  - Post thrombotic syndrome [Unknown]
  - Chest discomfort [Unknown]
  - Vaginal infection [Unknown]
  - Anxiety [Unknown]
  - Upper respiratory tract infection [Unknown]
  - Urinary tract infection [Unknown]

NARRATIVE: CASE EVENT DATE: 20050418
